FAERS Safety Report 17312969 (Version 2)
Quarter: 2020Q2

REPORT INFORMATION
  Report Type: Report from Study
  Country: FR (occurrence: FR)
  Receive Date: 20200124
  Receipt Date: 20200504
  Transmission Date: 20200713
  Serious: Yes (Death)
  Sender: FDA-Public Use
  Company Number: FR-ROCHE-2532203

PATIENT
  Sex: Male
  Weight: 83 kg

DRUGS (1)
  1. ATEZOLIZUMAB. [Suspect]
     Active Substance: ATEZOLIZUMAB
     Indication: SMALL CELL LUNG CANCER
     Route: 065

REACTIONS (1)
  - Guillain-Barre syndrome [Fatal]
